FAERS Safety Report 23626528 (Version 1)
Quarter: 2024Q1

REPORT INFORMATION
  Report Type: Spontaneous
  Country: AU (occurrence: AU)
  Receive Date: 20240313
  Receipt Date: 20240313
  Transmission Date: 20240410
  Serious: Yes (Life-Threatening, Other)
  Sender: FDA-Public Use
  Company Number: AU-PFIZER INC-HQWYE611023JUN04

PATIENT
  Age: 20 Year
  Sex: Female

DRUGS (3)
  1. METHOTREXATE SODIUM [Suspect]
     Active Substance: METHOTREXATE SODIUM
     Indication: B precursor type acute leukaemia
     Dosage: 15 MG, ON DAY 1, 3, 8, 15 AND 22, CYCLIC
     Route: 037
     Dates: start: 200009, end: 2000
  2. CYTARABINE [Concomitant]
     Active Substance: CYTARABINE
     Indication: B precursor type acute leukaemia
     Dosage: 40 MG, ON DAY 1, 3, 8, 15 AND 22, CYCLIC
     Route: 037
     Dates: start: 200009
  3. HYDROCORTISONE [Concomitant]
     Active Substance: HYDROCORTISONE
     Indication: B precursor type acute leukaemia
     Dosage: 50 MG, ON DAY 1, 3, 8, 15 AND 22, CYCLIC
     Route: 037
     Dates: start: 200009

REACTIONS (1)
  - Leukoencephalopathy [Recovered/Resolved]

NARRATIVE: CASE EVENT DATE: 20000901
